FAERS Safety Report 16393366 (Version 1)
Quarter: 2019Q2

REPORT INFORMATION
  Report Type: Spontaneous
  Country: US (occurrence: US)
  Receive Date: 20190605
  Receipt Date: 20190605
  Transmission Date: 20190711
  Serious: Yes (Other)
  Sender: FDA-Public Use
  Company Number: US-PFIZER INC-2019237481

PATIENT
  Age: 58 Year

DRUGS (1)
  1. LYRICA [Suspect]
     Active Substance: PREGABALIN
     Indication: NERVE INJURY
     Dosage: UNK

REACTIONS (7)
  - Gait inability [Unknown]
  - Thrombosis [Unknown]
  - Animal bite [Unknown]
  - Back disorder [Unknown]
  - Cyst [Unknown]
  - Renal injury [Unknown]
  - Renal haemorrhage [Unknown]

NARRATIVE: CASE EVENT DATE: 2016
